FAERS Safety Report 6808998-9 (Version None)
Quarter: 2010Q2

REPORT INFORMATION
  Report Type: 
  Country: None (occurrence: None)
  Receive Date: 20100630
  Receipt Date: 20091117
  Transmission Date: 20101027
  Serious: No
  Sender: FDA-Public Use
  Company Number: US-PFIZER INC-2009272987

PATIENT
  Sex: Female
  Weight: 66.667 kg

DRUGS (3)
  1. XANAX [Suspect]
     Indication: PANIC DISORDER
     Dates: end: 20080101
  2. XANAX XR [Suspect]
     Indication: PANIC DISORDER
     Dosage: 2 MG, 3X/DAY
     Route: 048
     Dates: start: 20080101
  3. PRIMIDONE [Concomitant]

REACTIONS (2)
  - DRUG EFFECT DECREASED [None]
  - DRUG INTOLERANCE [None]
